FAERS Safety Report 17571446 (Version 1)
Quarter: 2020Q1

REPORT INFORMATION
  Report Type: Spontaneous
  Country: US (occurrence: US)
  Receive Date: 20200323
  Receipt Date: 20200323
  Transmission Date: 20200409
  Serious: Yes (Other)
  Sender: FDA-Public Use
  Company Number: NVSC2020US081375

PATIENT
  Age: 61 Year
  Sex: Male

DRUGS (3)
  1. EVEROLIMUS. [Suspect]
     Active Substance: EVEROLIMUS
     Indication: ANAPLASTIC MENINGIOMA
     Dosage: UNK
     Route: 065
  2. HYDROXYUREA. [Suspect]
     Active Substance: HYDROXYUREA
     Indication: ANAPLASTIC MENINGIOMA
     Dosage: UNK
     Route: 065
  3. BEVACIZUMAB. [Suspect]
     Active Substance: BEVACIZUMAB
     Indication: ANAPLASTIC MENINGIOMA
     Dosage: UNK
     Route: 065

REACTIONS (2)
  - Anaplastic meningioma [Unknown]
  - Product use in unapproved indication [Unknown]
